FAERS Safety Report 7813673-8 (Version None)
Quarter: 2011Q4

REPORT INFORMATION
  Report Type: 
  Country: None (occurrence: None)
  Receive Date: 20111014
  Receipt Date: 20111003
  Transmission Date: 20120403
  Serious: Yes (Hospitalization, Other)
  Sender: FDA-Public Use
  Company Number: US-RANBAXY-2011RR-48869

PATIENT
  Sex: Female

DRUGS (16)
  1. LEVAQUIN [Suspect]
     Dosage: 500-750 MG
     Route: 048
     Dates: start: 20050513
  2. METHYLPREDNISOLONE [Suspect]
     Indication: PRODUCT USED FOR UNKNOWN INDICATION
     Dosage: UNK
     Route: 048
     Dates: start: 20060501
  3. LEVAQUIN [Suspect]
     Dosage: 500-750 MG
     Route: 048
     Dates: start: 20061113
  4. LEVAQUIN [Suspect]
     Dosage: 500-750 MG
     Route: 048
     Dates: start: 20071007
  5. ADVAIR DISKUS 100/50 [Suspect]
     Indication: PRODUCT USED FOR UNKNOWN INDICATION
     Dosage: 100/50 UG
     Route: 055
     Dates: start: 20070703, end: 20070823
  6. FLUTICASONE PROPIONATE [Suspect]
     Indication: PRODUCT USED FOR UNKNOWN INDICATION
     Dosage: UNK
     Route: 045
     Dates: start: 20060801
  7. LEVAQUIN [Suspect]
     Dosage: 500-750 MG
     Route: 048
     Dates: start: 20060724
  8. TRIAMCINOLONE [Suspect]
     Indication: PRODUCT USED FOR UNKNOWN INDICATION
     Dosage: UNK
     Route: 061
     Dates: start: 20030301
  9. PREDNISOLONE [Suspect]
     Dosage: 5 MG, UNK
     Route: 048
     Dates: start: 20030328
  10. LEVAQUIN [Suspect]
     Dosage: 500-750 MG
     Route: 048
     Dates: start: 20051219
  11. LEVAQUIN [Suspect]
     Dosage: 500-750 MG
     Route: 048
     Dates: start: 20070716
  12. PREDNISOLONE [Suspect]
     Indication: INFECTION
     Dosage: 5 MG, UNK
     Route: 048
     Dates: start: 20021127, end: 20021203
  13. COMBIVENT [Concomitant]
     Indication: LUNG DISORDER
     Dosage: UNK
     Route: 065
  14. LEVAQUIN [Suspect]
     Indication: LUNG INFECTION
     Dosage: 500-750 MG
     Route: 048
     Dates: start: 20050302
  15. LEVAQUIN [Suspect]
     Dosage: 500-750 MG
     Route: 048
     Dates: start: 20060206
  16. LEVAQUIN [Suspect]
     Dosage: 500-750 MG
     Route: 048
     Dates: start: 20071015

REACTIONS (4)
  - MUSCLE RUPTURE [None]
  - ROTATOR CUFF SYNDROME [None]
  - ANXIETY [None]
  - TENDONITIS [None]
